FAERS Safety Report 18139455 (Version 2)
Quarter: 2020Q3

REPORT INFORMATION
  Report Type: Other
  Country: PT (occurrence: PT)
  Receive Date: 20200812
  Receipt Date: 20200825
  Transmission Date: 20201103
  Serious: Yes (Hospitalization, Other)
  Sender: FDA-Public Use
  Company Number: PT-ASPEN-GLO2020PT007718

PATIENT
  Age: 53 Year
  Sex: Male

DRUGS (21)
  1. BUSULFAN. [Suspect]
     Active Substance: BUSULFAN
     Indication: ALLOGENIC BONE MARROW TRANSPLANTATION THERAPY
     Dosage: UNK
     Route: 065
     Dates: start: 200512
  2. BUSULFAN. [Suspect]
     Active Substance: BUSULFAN
     Indication: ACUTE MYELOID LEUKAEMIA
  3. ACYCLOVIR. [Suspect]
     Active Substance: ACYCLOVIR
     Indication: PRODUCT USED FOR UNKNOWN INDICATION
     Route: 065
  4. CYCLOSPORINE. [Suspect]
     Active Substance: CYCLOSPORINE
     Dosage: 50 MG EVERY 12 HOURS
     Route: 065
  5. FOLATE SODIUM [Suspect]
     Active Substance: FOLATE SODIUM
     Indication: PRODUCT USED FOR UNKNOWN INDICATION
     Route: 065
  6. ENALAPRIL [Suspect]
     Active Substance: ENALAPRIL
     Indication: PRODUCT USED FOR UNKNOWN INDICATION
     Dosage: 20 MG, QD
     Route: 065
  7. BISOPROLOL [Suspect]
     Active Substance: BISOPROLOL
     Indication: PRODUCT USED FOR UNKNOWN INDICATION
     Dosage: 5 MG, QD
     Route: 065
  8. METHOTREXATE. [Suspect]
     Active Substance: METHOTREXATE
     Indication: STEM CELL TRANSPLANT
     Route: 065
  9. PREDNISOLONE. [Suspect]
     Active Substance: PREDNISOLONE
     Indication: ACUTE GRAFT VERSUS HOST DISEASE
     Dosage: 30 MG QOD
     Route: 065
  10. ETOPOSIDE. [Suspect]
     Active Substance: ETOPOSIDE
     Indication: PRODUCT USED FOR UNKNOWN INDICATION
     Route: 065
  11. METHOTREXATE. [Suspect]
     Active Substance: METHOTREXATE
     Indication: ACUTE GRAFT VERSUS HOST DISEASE
  12. IDARUBICIN [Suspect]
     Active Substance: IDARUBICIN
     Indication: PRODUCT USED FOR UNKNOWN INDICATION
     Route: 065
  13. MAGNESIUM [Concomitant]
     Active Substance: MAGNESIUM
     Indication: PRODUCT USED FOR UNKNOWN INDICATION
  14. CYCLOSPORINE. [Suspect]
     Active Substance: CYCLOSPORINE
     Indication: PROPHYLAXIS AGAINST GRAFT VERSUS HOST DISEASE
     Dosage: UNK
     Route: 065
     Dates: start: 200512
  15. MIANSERIN [Concomitant]
     Active Substance: MIANSERIN
     Indication: PRODUCT USED FOR UNKNOWN INDICATION
     Route: 065
  16. MYCOPHENOLATE MOFETIL. [Concomitant]
     Active Substance: MYCOPHENOLATE MOFETIL
     Indication: GRAFT VERSUS HOST DISEASE
     Dosage: 2 G, QD
     Route: 065
  17. CARBOPLATIN. [Suspect]
     Active Substance: CARBOPLATIN
     Indication: PRODUCT USED FOR UNKNOWN INDICATION
     Route: 065
  18. FLUDARABINE [Suspect]
     Active Substance: FLUDARABINE PHOSPHATE
     Indication: ALLOGENIC BONE MARROW TRANSPLANTATION THERAPY
     Route: 065
  19. CYTARABINE. [Suspect]
     Active Substance: CYTARABINE
     Indication: PRODUCT USED FOR UNKNOWN INDICATION
     Route: 065
  20. METHYLPREDNISOLONE. [Suspect]
     Active Substance: METHYLPREDNISOLONE
     Indication: PRODUCT USED FOR UNKNOWN INDICATION
     Route: 042
  21. COTRIMOXAZOLE [Concomitant]
     Active Substance: SULFAMETHOXAZOLE\TRIMETHOPRIM
     Indication: PRODUCT USED FOR UNKNOWN INDICATION
     Dosage: 960 MG TIW
     Route: 065

REACTIONS (42)
  - Anti-platelet antibody positive [Recovered/Resolved]
  - Meningioma [Unknown]
  - Adenomatous polyposis coli [Unknown]
  - Blood bilirubin increased [Recovered/Resolved]
  - Hypoalbuminaemia [Recovered/Resolved]
  - Acute graft versus host disease in skin [Recovered/Resolved]
  - Blood urea increased [Recovered/Resolved]
  - Alanine aminotransferase increased [Recovered/Resolved]
  - Deep vein thrombosis [Unknown]
  - Blood alkaline phosphatase increased [Recovered/Resolved]
  - Blood bilirubin unconjugated increased [Recovered/Resolved]
  - Renal tubular necrosis [Recovered/Resolved]
  - Gamma-glutamyltransferase increased [Recovered/Resolved]
  - Coombs direct test positive [Recovered/Resolved]
  - Chronic graft versus host disease [Not Recovered/Not Resolved]
  - Withdrawal syndrome [Unknown]
  - Blood lactate dehydrogenase increased [Recovered/Resolved]
  - Eye pain [Unknown]
  - Acute kidney injury [Recovered/Resolved]
  - Dry mouth [Recovered/Resolved]
  - Skin hypertrophy [Recovered/Resolved]
  - Lichenoid keratosis [Recovered/Resolved]
  - Hypercholesterolaemia [Recovered/Resolved]
  - Generalised oedema [Recovered/Resolved]
  - Rash maculo-papular [Recovered/Resolved]
  - 5^nucleotidase increased [Recovered/Resolved]
  - Dry eye [Recovered/Resolved]
  - Chronic graft versus host disease in eye [Not Recovered/Not Resolved]
  - Poikiloderma [Recovered/Resolved]
  - Nephrotic syndrome [Recovered/Resolved]
  - Reticulocytosis [Recovered/Resolved]
  - Haptoglobin decreased [Recovered/Resolved]
  - Urine analysis abnormal [Recovered/Resolved]
  - Cytomegalovirus infection [Recovered/Resolved]
  - Blood creatinine increased [Recovered/Resolved]
  - Aspartate aminotransferase increased [Recovered/Resolved]
  - Thrombocytopenia [Recovered/Resolved]
  - Embolism venous [Unknown]
  - Acute graft versus host disease [Recovered/Resolved]
  - Anaemia [Recovered/Resolved]
  - Proteinuria [Recovered/Resolved]
  - Diplopia [Recovered/Resolved]
